FAERS Safety Report 16137678 (Version 4)
Quarter: 2019Q3

REPORT INFORMATION
  Report Type: Report from Study
  Country: US (occurrence: US)
  Receive Date: 20190330
  Receipt Date: 20190822
  Transmission Date: 20191004
  Serious: Yes (Hospitalization)
  Sender: FDA-Public Use
  Company Number: PHEH2019US013003

PATIENT
  Sex: Female

DRUGS (1)
  1. MEKINIST [Suspect]
     Active Substance: TRAMETINIB DIMETHYL SULFOXIDE
     Indication: PRODUCT USED FOR UNKNOWN INDICATION
     Route: 065

REACTIONS (7)
  - Syncope [Unknown]
  - Mass [Recovered/Resolved]
  - Hypoacusis [Unknown]
  - Seizure [Unknown]
  - Rash erythematous [Unknown]
  - Learning disability [Unknown]
  - Nephrolithiasis [Unknown]
